FAERS Safety Report 7423049-3 (Version None)
Quarter: 2011Q2

REPORT INFORMATION
  Report Type: 
  Country: None (occurrence: None)
  Receive Date: 20110419
  Receipt Date: 20110413
  Transmission Date: 20111010
  Serious: Yes (Death)
  Sender: FDA-Public Use
  Company Number: JP-ELI_LILLY_AND_COMPANY-JP201104000001

PATIENT
  Sex: Female
  Weight: 48 kg

DRUGS (6)
  1. ALIMTA [Suspect]
     Indication: LUNG ADENOCARCINOMA STAGE IV
     Dosage: 740 MG, UNK
     Route: 042
     Dates: start: 20101215, end: 20110209
  2. MAGMITT [Concomitant]
     Indication: CONSTIPATION
     Dosage: 330 MG, TID
     Route: 048
     Dates: start: 20100216, end: 20110325
  3. DECADRON [Concomitant]
     Indication: PROPHYLAXIS
     Dosage: 4 MG, UNK
     Route: 048
     Dates: start: 20101214, end: 20110210
  4. OMEPRAZOLE [Concomitant]
     Indication: REFLUX OESOPHAGITIS
     Dosage: 10 MG, QD
     Route: 048
     Dates: start: 20100216, end: 20110325
  5. FOLIC ACID [Concomitant]
     Dosage: 0.5 MG, UNK
     Route: 048
     Dates: start: 20101205, end: 20110325
  6. METHYCOBAL [Concomitant]
     Dosage: 1 MG, UNK
     Route: 030
     Dates: start: 20101207, end: 20110207

REACTIONS (1)
  - INTERSTITIAL LUNG DISEASE [None]
